FAERS Safety Report 11415340 (Version 1)
Quarter: 2015Q3

REPORT INFORMATION
  Report Type: Spontaneous
  Country: US (occurrence: None)
  Receive Date: 20150824
  Receipt Date: 20150824
  Transmission Date: 20151125
  Serious: Yes (Other)
  Sender: FDA-Public Use
  Company Number: None

PATIENT
  Age: 66 Year
  Sex: Male
  Weight: 108.86 kg

DRUGS (11)
  1. GARLIC EXTRACT [Concomitant]
  2. FLUOCINONIDE .05% 30G .02% [Suspect]
     Active Substance: FLUOCINONIDE
     Indication: ECZEMA
     Dosage: APPLY SMALL AMOUNT TO ?TWICE DAILY?APPLIED TO A SURFACE USUALLY THE SKIN
     Route: 061
     Dates: start: 20150820, end: 20150820
  3. TRIAMTERENE. [Concomitant]
     Active Substance: TRIAMTERENE
  4. AMLODIPINE [Concomitant]
     Active Substance: AMLODIPINE BESYLATE
  5. METROPOLOL [Concomitant]
     Active Substance: METOPROLOL
  6. AMETRIPTYLENE [Concomitant]
  7. ADULT VITAMIN [Concomitant]
  8. CARBAMAZEPRINE [Concomitant]
  9. DAILY ASPIRIN [Concomitant]
  10. ATORVASTATIN [Concomitant]
     Active Substance: ATORVASTATIN
  11. VITAMIN D [Concomitant]
     Active Substance: CHOLECALCIFEROL

REACTIONS (2)
  - Product quality issue [None]
  - Burning sensation [None]

NARRATIVE: CASE EVENT DATE: 20150820
